FAERS Safety Report 12546945 (Version 3)
Quarter: 2016Q3

REPORT INFORMATION
  Report Type: Spontaneous
  Country: JP (occurrence: JP)
  Receive Date: 20160711
  Receipt Date: 20160726
  Transmission Date: 20161109
  Serious: Yes (Death, Other)
  Sender: FDA-Public Use
  Company Number: PHJP2016JP019449

PATIENT
  Sex: Male
  Weight: 60.8 kg

DRUGS (1)
  1. VOTRIENT [Suspect]
     Active Substance: PAZOPANIB HYDROCHLORIDE
     Indication: RETROPERITONEAL CANCER
     Dosage: 800 MG, UNK
     Route: 048

REACTIONS (6)
  - Fistula [Unknown]
  - Peritonitis [Fatal]
  - Gastrointestinal perforation [Unknown]
  - Disseminated intravascular coagulation [Unknown]
  - Condition aggravated [Unknown]
  - Ascites [Unknown]
